FAERS Safety Report 12104946 (Version 1)
Quarter: 2016Q1

REPORT INFORMATION
  Report Type: Spontaneous
  Country: SG (occurrence: SG)
  Receive Date: 20160223
  Receipt Date: 20160223
  Transmission Date: 20160526
  Serious: Yes (Hospitalization)
  Sender: FDA-Public Use
  Company Number: SG-IPCA LABORATORIES LIMITED-IPC201602-000257

PATIENT
  Age: 56 Year
  Sex: Female

DRUGS (8)
  1. WARFARIN [Suspect]
     Active Substance: WARFARIN
     Indication: ATRIAL FIBRILLATION
     Dates: start: 2001
  2. FENOFIBRATE. [Concomitant]
     Active Substance: FENOFIBRATE
  3. FUROSEMIDE. [Concomitant]
     Active Substance: FUROSEMIDE
  4. DIGOXIN. [Concomitant]
     Active Substance: DIGOXIN
  5. BISOPROLOL [Concomitant]
     Active Substance: BISOPROLOL
  6. GLIPIZIDE. [Concomitant]
     Active Substance: GLIPIZIDE
  7. METFORMIN [Concomitant]
     Active Substance: METFORMIN HYDROCHLORIDE
  8. POTASSIUM CHLORIDE. [Concomitant]
     Active Substance: POTASSIUM CHLORIDE

REACTIONS (3)
  - International normalised ratio increased [Recovered/Resolved]
  - Nephropathy [Recovering/Resolving]
  - Anticoagulation drug level increased [Recovered/Resolved]
